FAERS Safety Report 8953506 (Version 1)
Quarter: 2012Q4

REPORT INFORMATION
  Report Type: 
  Country: DE (occurrence: DE)
  Receive Date: 20121206
  Receipt Date: 20121206
  Transmission Date: 20130627
  Serious: Yes (Other)
  Sender: FDA-Public Use
  Company Number: DE-GLAXOSMITHKLINE-D0078069A

PATIENT
  Age: 38 Year
  Sex: Female

DRUGS (1)
  1. SEROXAT [Suspect]
     Route: 048

REACTIONS (4)
  - Ulcer haemorrhage [Unknown]
  - Vaginal haemorrhage [Recovered/Resolved]
  - Epistaxis [Recovered/Resolved]
  - Nasal mucosal disorder [Unknown]
